FAERS Safety Report 5677941-0 (Version None)
Quarter: 2008Q1

REPORT INFORMATION
  Report Type: 
  Country: None (occurrence: None)
  Receive Date: 20080319
  Receipt Date: 20050808
  Transmission Date: 20080703
  Serious: Yes (Other)
  Sender: FDA-Public Use
  Company Number: US022690

PATIENT
  Age: 33 Year
  Sex: Female
  Weight: 65.7716 kg

DRUGS (4)
  1. PROVIGIL [Suspect]
     Indication: AUTONOMIC NEUROPATHY
     Dosage: 400 MG QD ORAL
     Route: 048
     Dates: start: 20050201
  2. FLORINEF [Concomitant]
  3. WELLBUTRIN XL [Concomitant]
  4. KERLONE [Concomitant]

REACTIONS (1)
  - NEOPLASM PROGRESSION [None]
